FAERS Safety Report 9025560 (Version 1)
Quarter: 2013Q1

REPORT INFORMATION
  Report Type: Spontaneous
  Country: ES (occurrence: ES)
  Receive Date: 20130122
  Receipt Date: 20130122
  Transmission Date: 20140127
  Serious: Yes (Hospitalization)
  Sender: FDA-Public Use
  Company Number: ES-TEVA-381987USA

PATIENT
  Age: 77 Year
  Sex: Female

DRUGS (2)
  1. TREANDA [Suspect]
     Indication: B-CELL LYMPHOMA
     Route: 042
     Dates: start: 20121114
  2. MABTHERA [Suspect]
     Indication: B-CELL LYMPHOMA
     Route: 042
     Dates: start: 20121113

REACTIONS (3)
  - Agranulocytosis [Recovering/Resolving]
  - Mucosal inflammation [Recovering/Resolving]
  - Febrile neutropenia [Recovering/Resolving]
